FAERS Safety Report 22310093 (Version 1)
Quarter: 2023Q2

REPORT INFORMATION
  Report Type: Spontaneous
  Country: US (occurrence: None)
  Receive Date: 20230510
  Receipt Date: 20230510
  Transmission Date: 20230721
  Serious: Yes (Hospitalization)
  Sender: FDA-Public Use
  Company Number: None

PATIENT
  Sex: Female

DRUGS (13)
  1. PROMACTA [Suspect]
     Active Substance: ELTROMBOPAG OLAMINE
     Dosage: 12.5 MG ORAL??TAKE 1 TABLET BY MOUTH ONCE DAILY TAKE ON AN EMPTY STOMACH, AT LEAST 1 HOUR BEFORE OR
     Route: 048
     Dates: start: 20230127
  2. ADEMPAS [Concomitant]
     Active Substance: RIOCIGUAT
  3. ALENDRONATE [Concomitant]
     Active Substance: ALENDRONATE SODIUM
  4. BREO ELLIPTA INH [Concomitant]
  5. CALCIUM [Concomitant]
     Active Substance: CALCIUM
  6. CETIRIZINE [Concomitant]
     Active Substance: CETIRIZINE HYDROCHLORIDE
  7. DOCUSATE SOD [Concomitant]
  8. FLUTICASONE SPR [Concomitant]
  9. FUROSEMIDE [Concomitant]
     Active Substance: FUROSEMIDE
  10. GABAPENTIN [Concomitant]
     Active Substance: GABAPENTIN
  11. NAPROXEN [Concomitant]
     Active Substance: NAPROXEN
  12. OMEPRAZOLE [Concomitant]
     Active Substance: OMEPRAZOLE
  13. VITAMIN D [Concomitant]
     Active Substance: VITAMIN D NOS

REACTIONS (1)
  - Hospitalisation [None]
